FAERS Safety Report 11651530 (Version 1)
Quarter: 2015Q4

REPORT INFORMATION
  Report Type: Spontaneous
  Country: CA (occurrence: None)
  Receive Date: 20151021
  Receipt Date: 20151021
  Transmission Date: 20160304
  Serious: Yes (Other)
  Sender: FDA-Public Use
  Company Number: None

PATIENT
  Age: 26 Year
  Sex: Female
  Weight: 58.97 kg

DRUGS (2)
  1. APO-SULFRATRIM DS 800/160MG [Suspect]
     Active Substance: SULFAMETHOXAZOLE\TRIMETHOPRIM
     Indication: ACNE
     Dosage: TAKEN BY MOUTH (PILLS)
     Dates: start: 20150903, end: 20150929
  2. ALYSENA 21 [Concomitant]

REACTIONS (19)
  - Dehydration [None]
  - Food poisoning [None]
  - Lymphadenopathy [None]
  - Musculoskeletal stiffness [None]
  - White blood cell count decreased [None]
  - Hepatic enzyme increased [None]
  - Asthenia [None]
  - Diarrhoea [None]
  - Malaise [None]
  - Nausea [None]
  - Chest discomfort [None]
  - Vomiting [None]
  - Rash erythematous [None]
  - Chromaturia [None]
  - Liver disorder [None]
  - Pruritus [None]
  - Faeces discoloured [None]
  - Inflammation [None]
  - Rash generalised [None]

NARRATIVE: CASE EVENT DATE: 20150929
